FAERS Safety Report 21334202 (Version 1)
Quarter: 2022Q3

REPORT INFORMATION
  Report Type: Spontaneous
  Country: AE (occurrence: None)
  Receive Date: 20220914
  Receipt Date: 20220914
  Transmission Date: 20221027
  Serious: Yes (Other)
  Sender: FDA-Public Use
  Company Number: None

PATIENT
  Age: 31 Year
  Sex: Female
  Weight: 75 kg

DRUGS (1)
  1. CERAVE AM FACIAL MOISTURIZING BROAD SPECTRUM SPF 30 SUNSCREEN [Suspect]
     Active Substance: HOMOSALATE\MERADIMATE\OCTINOXATE\OCTOCRYLENE\ZINC OXIDE
     Indication: Prophylaxis against solar radiation
     Dates: start: 20220910, end: 20220912

REACTIONS (1)
  - Application site papules [None]

NARRATIVE: CASE EVENT DATE: 20220914
